FAERS Safety Report 9053790 (Version 1)
Quarter: 2013Q1

REPORT INFORMATION
  Report Type: Spontaneous
  Country: US (occurrence: None)
  Receive Date: 20130201
  Receipt Date: 20130201
  Transmission Date: 20140127
  Serious: Yes (Other)
  Sender: FDA-Public Use
  Company Number: None

PATIENT
  Age: 56 Year
  Sex: Female
  Weight: 72.58 kg

DRUGS (1)
  1. NAPROXEN SODIUM [Suspect]
     Indication: NERVE COMPRESSION
     Dosage: 1 CAPSULES 12 HOURS
     Dates: start: 20130118, end: 20130125

REACTIONS (2)
  - Dysgeusia [None]
  - Parosmia [None]
